FAERS Safety Report 7966351-9 (Version None)
Quarter: 2011Q4

REPORT INFORMATION
  Report Type: 
  Country: None (occurrence: None)
  Receive Date: 20111208
  Receipt Date: 20111005
  Transmission Date: 20120403
  Serious: Yes (Other)
  Sender: FDA-Public Use
  Company Number: BR-PFIZER INC-2011239715

PATIENT
  Age: 55 Year
  Sex: Male
  Weight: 75 kg

DRUGS (1)
  1. VARENICLINE TARTRATE [Suspect]
     Indication: SMOKING CESSATION THERAPY
     Dosage: UNK
     Route: 048
     Dates: start: 20110919, end: 20110101

REACTIONS (9)
  - FEELING ABNORMAL [None]
  - DYSPNOEA [None]
  - ABDOMINAL PAIN UPPER [None]
  - INSOMNIA [None]
  - MIGRAINE [None]
  - GENERALISED OEDEMA [None]
  - NIGHTMARE [None]
  - SWELLING FACE [None]
  - OEDEMA PERIPHERAL [None]
